FAERS Safety Report 14524155 (Version 1)
Quarter: 2018Q1

REPORT INFORMATION
  Report Type: Report from Study
  Country: PT (occurrence: PT)
  Receive Date: 20180213
  Receipt Date: 20180213
  Transmission Date: 20180509
  Serious: Yes (Other)
  Sender: FDA-Public Use
  Company Number: PT-BAXTER-2018BAX004866

PATIENT
  Sex: Male

DRUGS (6)
  1. BLEOMYCIN [Suspect]
     Active Substance: BLEOMYCIN SULFATE
     Indication: TESTICULAR GERM CELL TUMOUR MIXED STAGE II
     Dosage: 3 CYCLES (BEP REGIMEN)
     Route: 065
  2. ETOPOSIDE. [Suspect]
     Active Substance: ETOPOSIDE
     Indication: TESTICULAR GERM CELL TUMOUR MIXED STAGE II
     Dosage: 3 CYCLES (BEP REGIMEN)
     Route: 065
  3. PACLITAXEL. [Suspect]
     Active Substance: PACLITAXEL
     Indication: TESTICULAR GERM CELL TUMOUR MIXED STAGE II
     Dosage: 3 CYCLES (TIP REGIMEN)
     Route: 065
  4. CISPLATIN. [Suspect]
     Active Substance: CISPLATIN
     Indication: TESTICULAR GERM CELL TUMOUR MIXED STAGE II
     Dosage: 3 CYCLES (TIP REGIMEN)
     Route: 065
  5. CISPLATIN. [Suspect]
     Active Substance: CISPLATIN
     Dosage: 3 CYCLES (BEP REGIMEN)
     Route: 065
  6. HOLOXAN [Suspect]
     Active Substance: IFOSFAMIDE
     Indication: TESTICULAR GERM CELL TUMOUR MIXED STAGE II
     Dosage: 3 CYCLES (TIP REGIMEN)
     Route: 065

REACTIONS (1)
  - Recurrent cancer [Recovered/Resolved]
